FAERS Safety Report 6600827-1 (Version None)
Quarter: 2010Q1

REPORT INFORMATION
  Report Type: 
  Country: None (occurrence: None)
  Receive Date: 20100225
  Receipt Date: 20100210
  Transmission Date: 20100710
  Serious: Yes (Hospitalization)
  Sender: FDA-Public Use
  Company Number: ES-ELI_LILLY_AND_COMPANY-ES201002002900

PATIENT
  Age: 66 Year
  Sex: Female

DRUGS (9)
  1. FORTEO [Suspect]
     Indication: OSTEOPOROSIS
     Dosage: 20 UG, DAILY (1/D)
     Route: 058
     Dates: start: 20090601, end: 20100119
  2. FORTEO [Suspect]
     Dosage: 20 UG, DAILY (1/D)
     Route: 058
     Dates: start: 20100121
  3. LAURIMIC [Concomitant]
  4. OMEPRAZOL [Concomitant]
  5. CARDIL                             /00489702/ [Concomitant]
  6. PLANTABEN [Concomitant]
  7. ARTEDIL [Concomitant]
     Dosage: 20 MG, EACH EVENING
  8. TRANXILIUM [Concomitant]
  9. ADOLONTA [Concomitant]

REACTIONS (2)
  - INTERVERTEBRAL DISC PROTRUSION [None]
  - PAIN IN EXTREMITY [None]
